FAERS Safety Report 7226994-7 (Version None)
Quarter: 2011Q1

REPORT INFORMATION
  Report Type: 
  Country: None (occurrence: None)
  Receive Date: 20110114
  Receipt Date: 20110103
  Transmission Date: 20110831
  Serious: No
  Sender: FDA-Public Use
  Company Number: TW-ELI_LILLY_AND_COMPANY-TW201101000395

PATIENT
  Age: 19 Year
  Sex: Female

DRUGS (2)
  1. ZYPREXA [Suspect]
     Dosage: 10 MG, DAILY (1/D)
  2. ZYPREXA [Suspect]
     Dosage: 10 MG, DAILY (1/D)

REACTIONS (4)
  - SOMNOLENCE [None]
  - EPISTAXIS [None]
  - TACHYCARDIA [None]
  - OCULOGYRIC CRISIS [None]
